FAERS Safety Report 11258308 (Version 1)
Quarter: 2015Q3

REPORT INFORMATION
  Report Type: Report from Study
  Country: BR (occurrence: BR)
  Receive Date: 20150710
  Receipt Date: 20150710
  Transmission Date: 20151125
  Serious: Yes (Other)
  Sender: FDA-Public Use
  Company Number: PHHY2015BR074694

PATIENT
  Sex: Female
  Weight: 91 kg

DRUGS (2)
  1. DIOVAN AMLO FIX [Suspect]
     Active Substance: AMLODIPINE\VALSARTAN
     Indication: HYPERTENSION
     Dosage: 1 DF (320/5 MG), QOD
     Route: 048
  2. DIOVAN AMLO FIX [Suspect]
     Active Substance: AMLODIPINE\VALSARTAN
     Dosage: 1 DF (320/10, MG), QOD
     Route: 048
     Dates: start: 20150508

REACTIONS (5)
  - Headache [Recovering/Resolving]
  - Blood pressure fluctuation [Recovering/Resolving]
  - Swelling [Not Recovered/Not Resolved]
  - Diabetes mellitus [Unknown]
  - Fluid retention [Not Recovered/Not Resolved]

NARRATIVE: CASE EVENT DATE: 2015
